FAERS Safety Report 22737790 (Version 10)
Quarter: 2023Q4

REPORT INFORMATION
  Report Type: Spontaneous
  Country: US (occurrence: US)
  Receive Date: 20230721
  Receipt Date: 20231129
  Transmission Date: 20240109
  Serious: No
  Sender: FDA-Public Use
  Company Number: US-PFIZER INC-PV202300125267

PATIENT
  Age: 39 Year
  Sex: Male
  Weight: 107 kg

DRUGS (2)
  1. BOSULIF [Suspect]
     Active Substance: BOSUTINIB MONOHYDRATE
     Indication: Chronic myeloid leukaemia
     Dosage: 100 MG TABLET, TAKE 4 TABLETS DAILY
     Route: 048
     Dates: start: 201902
  2. NITROSTAT [Concomitant]
     Active Substance: NITROGLYCERIN
     Dosage: PLACE 1 TABLET UNDER THE TONGUE AS NEEDED
     Route: 060

REACTIONS (3)
  - Swelling [Unknown]
  - Pain in extremity [Unknown]
  - Accident [Unknown]
